FAERS Safety Report 17559115 (Version 2)
Quarter: 2021Q4

REPORT INFORMATION
  Report Type: Spontaneous
  Country: US (occurrence: US)
  Receive Date: 20200319
  Receipt Date: 20211117
  Transmission Date: 20220303
  Serious: Yes (Other)
  Sender: FDA-Public Use
  Company Number: US-SA-2020SA068614

PATIENT
  Sex: Male

DRUGS (1)
  1. ZANTAC [Suspect]
     Active Substance: RANITIDINE HYDROCHLORIDE
     Dosage: 150 MG, QD
     Route: 065
     Dates: start: 1993, end: 2019

REACTIONS (3)
  - Prostate cancer [Unknown]
  - Bladder cancer [Unknown]
  - Anxiety [Unknown]

NARRATIVE: CASE EVENT DATE: 20180601
